FAERS Safety Report 4372578-8 (Version None)
Quarter: 2004Q2

REPORT INFORMATION
  Report Type: 
  Country: None (occurrence: None)
  Receive Date: 20040526
  Receipt Date: 20040518
  Transmission Date: 20050107
  Serious: Yes (Other)
  Sender: FDA-Public Use
  Company Number: USA-2004-0015174

PATIENT
  Age: 50 Year
  Sex: Female

DRUGS (1)
  1. OXYCONTIN [Suspect]

REACTIONS (5)
  - BONE DENSITY DECREASED [None]
  - NAUSEA [None]
  - PERIODONTAL DISEASE [None]
  - TOOTH DISORDER [None]
  - WEIGHT INCREASED [None]
